FAERS Safety Report 9319206 (Version 1)
Quarter: 2013Q2

REPORT INFORMATION
  Report Type: Spontaneous
  Country: US (occurrence: None)
  Receive Date: 20130529
  Receipt Date: 20130529
  Transmission Date: 20140414
  Serious: Yes (Other)
  Sender: FDA-Public Use
  Company Number: None

PATIENT
  Age: 49 Year
  Sex: Female

DRUGS (1)
  1. STIVARGA 40MG BAYER [Suspect]
     Indication: COLON CANCER
     Dosage: 160 MG QAM PO DAYS 1 -} 21 Q 28 DAYS
     Dates: start: 20130325, end: 20130506

REACTIONS (2)
  - Treatment failure [None]
  - Malignant neoplasm progression [None]
